FAERS Safety Report 12633361 (Version 2)
Quarter: 2017Q2

REPORT INFORMATION
  Report Type: Spontaneous
  Country: US (occurrence: US)
  Receive Date: 20160809
  Receipt Date: 20170404
  Transmission Date: 20170830
  Serious: No
  Sender: FDA-Public Use
  Company Number: US-TEVA-675477USA

PATIENT
  Age: 59 Year
  Sex: Female

DRUGS (9)
  1. BETHANECHOL [Concomitant]
     Active Substance: BETHANECHOL
  2. BIOTIN [Concomitant]
     Active Substance: BIOTIN
  3. LUMIGAN [Concomitant]
     Active Substance: BIMATOPROST
  4. COPAXONE [Suspect]
     Active Substance: GLATIRAMER ACETATE
     Indication: MULTIPLE SCLEROSIS
     Route: 058
     Dates: start: 20160824
  5. GINKGO BILOBA [Concomitant]
     Active Substance: GINKGO
  6. VITAMIN D3 [Concomitant]
     Active Substance: CHOLECALCIFEROL
  7. AMPIRA [Concomitant]
  8. PREMARIN [Concomitant]
     Active Substance: ESTROGENS, CONJUGATED
  9. VOLTAREN [Concomitant]
     Active Substance: DICLOFENAC SODIUM

REACTIONS (3)
  - Fall [Unknown]
  - Injection site swelling [Unknown]
  - Injection site pain [Unknown]

NARRATIVE: CASE EVENT DATE: 20170309
